FAERS Safety Report 6008763-9 (Version None)
Quarter: 2008Q4

REPORT INFORMATION
  Report Type: 
  Country: None (occurrence: None)
  Receive Date: 20081215
  Receipt Date: 20081215
  Transmission Date: 20090506
  Serious: Yes (Hospitalization)
  Sender: FDA-Public Use
  Company Number: None

PATIENT
  Age: 77 Year
  Sex: Female
  Weight: 45.3597 kg

DRUGS (7)
  1. SIMVASTATIN [Suspect]
     Dosage: 1 IN 1 D
     Dates: start: 20080601
  2. LEVOTHYROXINE [Concomitant]
  3. QUETIAPINE FUMARATE [Concomitant]
  4. CITALOPRAM [Concomitant]
  5. GABAPENTIN [Concomitant]
  6. ALPRAZOLAM [Concomitant]
  7. HYDROCODONE BITARTRATE + ACETAMINOPHEN [Concomitant]

REACTIONS (1)
  - RENAL MASS [None]
